FAERS Safety Report 18912513 (Version 1)
Quarter: 2021Q1

REPORT INFORMATION
  Report Type: Spontaneous
  Country: US (occurrence: US)
  Receive Date: 20210218
  Receipt Date: 20210218
  Transmission Date: 20210420
  Serious: No
  Sender: FDA-Public Use
  Company Number: US-TEVA-2021-US-1879082

PATIENT
  Sex: Female

DRUGS (1)
  1. METOCLOPRAMIDE HCL [Suspect]
     Active Substance: METOCLOPRAMIDE HYDROCHLORIDE
     Route: 065

REACTIONS (5)
  - Rash [Unknown]
  - Hypertension [Unknown]
  - Hyperhidrosis [Unknown]
  - Adverse event [Unknown]
  - Abdominal pain upper [Unknown]
